FAERS Safety Report 15719365 (Version 1)
Quarter: 2018Q4

REPORT INFORMATION
  Report Type: Spontaneous
  Country: US (occurrence: US)
  Receive Date: 20181213
  Receipt Date: 20181213
  Transmission Date: 20190205
  Serious: Yes (Hospitalization)
  Sender: FDA-Public Use
  Company Number: PHHY2018US178401

PATIENT
  Age: 19 Year
  Sex: Female

DRUGS (2)
  1. ERYTHROMYCIN ETHYLSUCCINATE. [Suspect]
     Active Substance: ERYTHROMYCIN ETHYLSUCCINATE
     Indication: IMPAIRED GASTRIC EMPTYING
     Dosage: 300 MG, Q6H
     Route: 065
  2. COLCHICINE. [Interacting]
     Active Substance: COLCHICINE
     Indication: IMPAIRED GASTRIC EMPTYING
     Dosage: 0.6 MG, Q8H
     Route: 065

REACTIONS (11)
  - Hyperferritinaemia [Unknown]
  - Posterior reversible encephalopathy syndrome [Unknown]
  - Drug interaction [Unknown]
  - Cytopenia [Unknown]
  - Hypertriglyceridaemia [Unknown]
  - Toxicity to various agents [Unknown]
  - Hepatitis acute [Unknown]
  - Abdominal pain [Unknown]
  - Vomiting [Unknown]
  - Pyrexia [Unknown]
  - Product use in unapproved indication [Unknown]
